FAERS Safety Report 6804033-7 (Version None)
Quarter: 2010Q2

REPORT INFORMATION
  Report Type: 
  Country: None (occurrence: None)
  Receive Date: 20100628
  Receipt Date: 20061218
  Transmission Date: 20101027
  Serious: Yes (Other)
  Sender: FDA-Public Use
  Company Number: US-PFIZER INC-2006154857

PATIENT
  Sex: Male
  Weight: 81.65 kg

DRUGS (6)
  1. SUTENT [Suspect]
     Indication: RENAL CELL CARCINOMA
     Dates: start: 20061001
  2. PROTONIX [Concomitant]
  3. ALL OTHER THERAPEUTIC PRODUCTS [Concomitant]
  4. ZYRTEC [Concomitant]
  5. MULTIPLE VITAMINS [Concomitant]
  6. HYDROCHLOROTHIAZIDE [Concomitant]

REACTIONS (4)
  - GASTROINTESTINAL HAEMORRHAGE [None]
  - HAEMATOCHEZIA [None]
  - HYPERTENSION [None]
  - ORAL PAIN [None]
